FAERS Safety Report 6172536-7 (Version None)
Quarter: 2009Q2

REPORT INFORMATION
  Report Type: 
  Country: None (occurrence: None)
  Receive Date: 20090427
  Receipt Date: 20090413
  Transmission Date: 20091009
  Serious: Yes (Hospitalization)
  Sender: FDA-Public Use
  Company Number: 2009AL002135

PATIENT
  Age: 41 Year
  Sex: Female

DRUGS (1)
  1. FEVERALL [Suspect]

REACTIONS (15)
  - ACUTE HEPATIC FAILURE [None]
  - AGITATION [None]
  - AMMONIA INCREASED [None]
  - BRAIN OEDEMA [None]
  - CHRONIC HEPATIC FAILURE [None]
  - CONTINUOUS HAEMODIAFILTRATION [None]
  - HEPATIC ENCEPHALOPATHY [None]
  - HEPATIC STEATOSIS [None]
  - INTERNATIONAL NORMALISED RATIO INCREASED [None]
  - LACTIC ACIDOSIS [None]
  - METABOLIC ENCEPHALOPATHY [None]
  - OLIGURIA [None]
  - OVERDOSE [None]
  - RESPIRATORY DISTRESS [None]
  - UROSEPSIS [None]
